FAERS Safety Report 8391869-7 (Version None)
Quarter: 2012Q2

REPORT INFORMATION
  Report Type: 
  Country: None (occurrence: None)
  Receive Date: 20120529
  Receipt Date: 20120523
  Transmission Date: 20120825
  Serious: Yes (Hospitalization)
  Sender: FDA-Public Use
  Company Number: CA-GLAXOSMITHKLINE-A0970020A

PATIENT
  Sex: Female
  Weight: 54.5 kg

DRUGS (6)
  1. MOUTHWASH [Concomitant]
  2. TYLENOL [Concomitant]
     Route: 065
  3. BETAHISTINE [Concomitant]
     Route: 065
  4. VENTOLIN [Concomitant]
     Route: 065
  5. TYLENOL W/ CODEINE NO. 3 [Concomitant]
     Route: 065
  6. ADVAIR DISKUS 100/50 [Suspect]
     Indication: ASTHMA
     Dosage: 1PUFF TWICE PER DAY
     Route: 055
     Dates: start: 20120113

REACTIONS (6)
  - ILL-DEFINED DISORDER [None]
  - CHEST DISCOMFORT [None]
  - DYSPNOEA [None]
  - WRIST FRACTURE [None]
  - FALL [None]
  - COUGH [None]
